FAERS Safety Report 16040792 (Version 1)
Quarter: 2019Q1

REPORT INFORMATION
  Report Type: Spontaneous
  Country: IT (occurrence: IT)
  Receive Date: 20190306
  Receipt Date: 20190306
  Transmission Date: 20190418
  Serious: Yes (Hospitalization)
  Sender: FDA-Public Use
  Company Number: PHHY2019IT047836

PATIENT
  Age: 70 Year
  Sex: Male

DRUGS (1)
  1. BISOPROLOL FUMARATE. [Suspect]
     Active Substance: BISOPROLOL FUMARATE
     Indication: PRODUCT ADMINISTRATION ERROR
     Dosage: 10 MG, UNK (TOTAL)
     Route: 048
     Dates: start: 20190214, end: 20190214

REACTIONS (2)
  - Medication error [Recovering/Resolving]
  - Bradycardia [Recovering/Resolving]

NARRATIVE: CASE EVENT DATE: 20190214
